FAERS Safety Report 6918011-0 (Version None)
Quarter: 2010Q3

REPORT INFORMATION
  Report Type: 
  Country: None (occurrence: None)
  Receive Date: 20100810
  Receipt Date: 20091117
  Transmission Date: 20110219
  Serious: No
  Sender: FDA-Public Use
  Company Number: US-PFIZER INC-2009266911

PATIENT
  Sex: Female
  Weight: 71.2 kg

DRUGS (10)
  1. TOVIAZ [Suspect]
     Indication: HYPERTONIC BLADDER
     Dosage: 4 MG, 1X/DAY
     Route: 048
     Dates: start: 20090831
  2. PREDNISONE [Concomitant]
     Indication: CHONDROCALCINOSIS PYROPHOSPHATE
     Dosage: 2.5 MG, UNK
  3. PREDNISONE [Concomitant]
     Dosage: UNK
  4. COLCHICINE [Concomitant]
     Dosage: 0.6 MG, 2X/DAY
  5. DIGOXIN [Concomitant]
     Dosage: 0.25 MG, 1X/DAY
  6. NORVASC [Concomitant]
     Dosage: 5 MG, 1X/DAY
  7. ZETIA [Concomitant]
     Dosage: 10 MG, 1X/DAY
  8. ZYRTEC [Concomitant]
     Dosage: 10 MG, 1X/DAY
  9. ESTRADIOL [Concomitant]
     Dosage: 1 MG, 1X/DAY
  10. LOVASTATIN [Concomitant]
     Dosage: 40 MG, 1X/DAY

REACTIONS (2)
  - HEART RATE INCREASED [None]
  - PALPITATIONS [None]
